FAERS Safety Report 25610974 (Version 1)
Quarter: 2025Q3

REPORT INFORMATION
  Report Type: Spontaneous
  Country: US (occurrence: US)
  Receive Date: 20250728
  Receipt Date: 20250728
  Transmission Date: 20251021
  Serious: Yes (Other)
  Sender: AMGEN
  Company Number: US-AMGEN-USASP2025144171

PATIENT
  Age: 20 Year
  Sex: Male

DRUGS (1)
  1. ADALIMUMAB [Suspect]
     Active Substance: ADALIMUMAB
     Indication: Crohn^s disease
     Route: 065

REACTIONS (8)
  - Colitis [Recovered/Resolved]
  - Ileal ulcer [Recovered/Resolved]
  - Large intestinal ulcer [Recovered/Resolved]
  - Therapeutic product effect incomplete [Unknown]
  - Proctitis [Recovered/Resolved]
  - Dermatitis atopic [Recovered/Resolved]
  - Alopecia universalis [Recovered/Resolved]
  - Pseudopolyp [Recovered/Resolved]
